FAERS Safety Report 4646471-7 (Version None)
Quarter: 2005Q2

REPORT INFORMATION
  Report Type: 
  Country: None (occurrence: None)
  Receive Date: 20050427
  Receipt Date: 20040414
  Transmission Date: 20051028
  Serious: No
  Sender: FDA-Public Use
  Company Number: US-GLAXOSMITHKLINE-A0507174A

PATIENT
  Sex: Female

DRUGS (2)
  1. FLOVENT [Suspect]
     Indication: PNEUMONIA
     Dosage: 2PUFF TWICE PER DAY
     Route: 055
     Dates: start: 20040401
  2. LEVAQUIN [Suspect]

REACTIONS (1)
  - FATIGUE [None]
